FAERS Safety Report 25471295 (Version 1)
Quarter: 2025Q2

REPORT INFORMATION
  Report Type: Spontaneous
  Country: CA (occurrence: CA)
  Receive Date: 20250624
  Receipt Date: 20250624
  Transmission Date: 20250716
  Serious: Yes (Other)
  Sender: APOTEX
  Company Number: CA-APOTEX-2025AP008804

PATIENT
  Sex: Male

DRUGS (36)
  1. QUETIAPINE [Suspect]
     Active Substance: QUETIAPINE
     Indication: Sedation
     Route: 065
     Dates: start: 20230717, end: 2023
  2. QUETIAPINE [Suspect]
     Active Substance: QUETIAPINE
     Route: 065
     Dates: start: 20230911, end: 2023
  3. QUETIAPINE [Suspect]
     Active Substance: QUETIAPINE
     Route: 065
     Dates: start: 20231217
  4. QUETIAPINE [Suspect]
     Active Substance: QUETIAPINE
     Route: 065
     Dates: start: 20240116, end: 20240602
  5. QUETIAPINE [Suspect]
     Active Substance: QUETIAPINE
     Route: 065
     Dates: start: 20240604, end: 202406
  6. QUETIAPINE [Suspect]
     Active Substance: QUETIAPINE
     Route: 065
     Dates: start: 20240618, end: 20240702
  7. TETRABENAZINE [Suspect]
     Active Substance: TETRABENAZINE
     Indication: Tardive dyskinesia
     Dosage: 100 MILLIGRAM, QD
     Route: 065
     Dates: start: 2023, end: 202305
  8. TETRABENAZINE [Suspect]
     Active Substance: TETRABENAZINE
     Route: 065
     Dates: start: 20230821, end: 2023
  9. TETRABENAZINE [Suspect]
     Active Substance: TETRABENAZINE
     Route: 065
     Dates: start: 20231030, end: 2023
  10. TETRABENAZINE [Suspect]
     Active Substance: TETRABENAZINE
     Route: 065
     Dates: start: 20231030, end: 2023
  11. TETRABENAZINE [Suspect]
     Active Substance: TETRABENAZINE
     Route: 065
     Dates: start: 20231201, end: 2023
  12. TETRABENAZINE [Suspect]
     Active Substance: TETRABENAZINE
     Route: 065
     Dates: start: 20231201, end: 2023
  13. TETRABENAZINE [Suspect]
     Active Substance: TETRABENAZINE
     Dosage: 37.5 MILLIGRAM, BID
     Route: 048
     Dates: start: 20231212
  14. TETRABENAZINE [Suspect]
     Active Substance: TETRABENAZINE
     Dosage: 37.5 MILLIGRAM, BID
     Route: 048
     Dates: start: 20231212
  15. TETRABENAZINE [Suspect]
     Active Substance: TETRABENAZINE
     Dosage: 25 MILLIGRAM, BID
     Route: 048
  16. TETRABENAZINE [Suspect]
     Active Substance: TETRABENAZINE
     Route: 065
     Dates: start: 20240314, end: 2024
  17. TETRABENAZINE [Suspect]
     Active Substance: TETRABENAZINE
     Route: 065
     Dates: start: 20240314, end: 2024
  18. TETRABENAZINE [Suspect]
     Active Substance: TETRABENAZINE
     Dosage: 50 MILLIGRAM, UP TITRATED TO Q3 DAYS
     Route: 065
     Dates: start: 20240517, end: 2024
  19. TETRABENAZINE [Suspect]
     Active Substance: TETRABENAZINE
     Dosage: 50 MILLIGRAM, UP TITRATED TO Q3 DAYS
     Route: 065
     Dates: start: 20240517, end: 2024
  20. TETRABENAZINE [Suspect]
     Active Substance: TETRABENAZINE
     Dosage: 75 MILLIGRAM UP TITRATED TO Q3 DAYS
     Route: 065
     Dates: start: 20240604, end: 2024
  21. TETRABENAZINE [Suspect]
     Active Substance: TETRABENAZINE
     Dosage: 75 MILLIGRAM UP TITRATED TO Q3 DAYS
     Route: 065
     Dates: start: 20240604, end: 2024
  22. TETRABENAZINE [Suspect]
     Active Substance: TETRABENAZINE
     Dosage: 50 MILLIGRAM, Q.AM
     Route: 065
     Dates: start: 202406
  23. TETRABENAZINE [Suspect]
     Active Substance: TETRABENAZINE
     Dosage: 50 MILLIGRAM, Q.AM
     Route: 065
     Dates: start: 20240729
  24. TETRABENAZINE [Suspect]
     Active Substance: TETRABENAZINE
     Dosage: 50 MILLIGRAM, Q.H.S.
     Route: 065
     Dates: start: 202406
  25. TETRABENAZINE [Suspect]
     Active Substance: TETRABENAZINE
     Dosage: 50 MILLIGRAM, Q.H.S.
     Route: 065
     Dates: start: 20240729
  26. TETRABENAZINE [Suspect]
     Active Substance: TETRABENAZINE
     Dosage: 25 MILLIGRAM, Q.H.S.
     Route: 065
     Dates: start: 20241017
  27. PALIPERIDONE [Suspect]
     Active Substance: PALIPERIDONE
     Indication: Agitation
     Route: 065
     Dates: start: 2021
  28. PALIPERIDONE [Suspect]
     Active Substance: PALIPERIDONE
     Route: 065
     Dates: start: 202301, end: 2023
  29. PALIPERIDONE [Suspect]
     Active Substance: PALIPERIDONE
     Route: 065
     Dates: start: 20231027, end: 20231117
  30. BENZTROPINE [Concomitant]
     Active Substance: BENZTROPINE
     Indication: Product used for unknown indication
     Dosage: 2 MILLIGRAM, BID
     Route: 048
  31. BENZTROPINE [Concomitant]
     Active Substance: BENZTROPINE
     Route: 065
     Dates: start: 20240208, end: 20240211
  32. BENZTROPINE [Concomitant]
     Active Substance: BENZTROPINE
     Route: 065
     Dates: start: 20240208, end: 20240211
  33. BENZTROPINE [Concomitant]
     Active Substance: BENZTROPINE
     Dosage: 1 MILLIGRAM, BID
     Route: 065
     Dates: start: 20240212, end: 20240215
  34. BENZTROPINE [Concomitant]
     Active Substance: BENZTROPINE
     Dosage: 1 MILLIGRAM, Q.AM
     Route: 065
     Dates: start: 20240216, end: 20240220
  35. VITAMIN B6 [Concomitant]
     Active Substance: PYRIDOXINE HYDROCHLORIDE
     Indication: Product used for unknown indication
     Route: 065
     Dates: end: 202310
  36. VITAMIN E [Concomitant]
     Active Substance: .ALPHA.-TOCOPHEROL
     Indication: Product used for unknown indication
     Route: 065

REACTIONS (3)
  - Condition aggravated [Not Recovered/Not Resolved]
  - Tardive dyskinesia [Not Recovered/Not Resolved]
  - Drug ineffective [Unknown]

NARRATIVE: CASE EVENT DATE: 20230101
